FAERS Safety Report 9653449 (Version 1)
Quarter: 2013Q4

REPORT INFORMATION
  Report Type: Spontaneous
  Country: US (occurrence: US)
  Receive Date: 20131029
  Receipt Date: 20131029
  Transmission Date: 20140711
  Serious: No
  Sender: FDA-Public Use
  Company Number: US-BIOGENIDEC-2013BI079216

PATIENT
  Sex: Female

DRUGS (13)
  1. TECFIDERA [Suspect]
     Indication: MULTIPLE SCLEROSIS
     Route: 048
     Dates: start: 20130612, end: 20130618
  2. TECFIDERA [Suspect]
     Indication: MULTIPLE SCLEROSIS
     Route: 048
     Dates: start: 20130619
  3. GABAPENTIN [Concomitant]
  4. ASPIRIN [Concomitant]
  5. ENALAPRIL [Concomitant]
  6. ACYCLOVIR [Concomitant]
  7. TOPIRAMATE [Concomitant]
  8. SERTRALINE [Concomitant]
  9. TRAMADOL [Concomitant]
  10. CYCLOBENZAPRINE [Concomitant]
  11. ZYRTEC [Concomitant]
  12. TRICOR [Concomitant]
  13. ADVAIR [Concomitant]

REACTIONS (2)
  - Hypotension [Not Recovered/Not Resolved]
  - Dizziness [Not Recovered/Not Resolved]
